FAERS Safety Report 9820571 (Version 1)
Quarter: 2013Q4

REPORT INFORMATION
  Report Type: Spontaneous
  Country: US (occurrence: None)
  Receive Date: 20131028
  Receipt Date: 20131028
  Transmission Date: 20140711
  Serious: Yes (Other)
  Sender: FDA-Public Use
  Company Number: 2013US001815

PATIENT
  Age: 60 Year
  Sex: Male
  Weight: 69 kg

DRUGS (13)
  1. ICLUSIG [Suspect]
     Indication: CHRONIC MYELOID LEUKAEMIA
  2. RANITIDINE (RANITIDINE) [Concomitant]
  3. ANTIHYPERTENSIVES [Concomitant]
  4. ENALAPRIL (ENALAPRIL) [Concomitant]
  5. CYMBALTA (DULOXETINE HYDROCHLORIDE) [Concomitant]
  6. HYDROXYUREA (HYDROXYUREA) [Concomitant]
  7. ALLOPURINOL (ALLOPURINOL) [Concomitant]
  8. NIACIN (NIACIN) [Concomitant]
  9. COLCRYS (COLCHICINE) [Concomitant]
  10. SIMVASTATIN (SIMVASTATIN) [Concomitant]
  11. TIZANIDINE (TIZANIDINE) [Concomitant]
  12. CHOLESTYRAMINE (CHOLESTYRAMINE) POWDER (EXCEPT DPO) [Concomitant]
  13. HYDROCODONE (HYDROCODONE) [Concomitant]

REACTIONS (2)
  - Somnolence [None]
  - Diarrhoea [None]
